FAERS Safety Report 19951757 (Version 2)
Quarter: 2021Q4

REPORT INFORMATION
  Report Type: Spontaneous
  Country: US (occurrence: US)
  Receive Date: 20211013
  Receipt Date: 20211021
  Transmission Date: 20220303
  Serious: Yes (Life-Threatening, Hospitalization)
  Sender: FDA-Public Use
  Company Number: US-TEVA-2021-US-1963816

PATIENT
  Age: 70 Year
  Sex: Male

DRUGS (2)
  1. PREDNISONE [Suspect]
     Active Substance: PREDNISONE
     Indication: Bronchopulmonary aspergillosis allergic
     Route: 065
  2. BENRALIZUMAB [Suspect]
     Active Substance: BENRALIZUMAB
     Indication: Bronchopulmonary aspergillosis allergic
     Dosage: MONTHLY
     Route: 065

REACTIONS (4)
  - Haemophilus infection [Recovered/Resolved]
  - Strongyloidiasis [Recovered/Resolved]
  - Escherichia infection [Recovered/Resolved]
  - Haemoptysis [Recovered/Resolved]
